FAERS Safety Report 7974042-3 (Version None)
Quarter: 2011Q4

REPORT INFORMATION
  Report Type: 
  Country: None (occurrence: None)
  Receive Date: 20111213
  Receipt Date: 20111129
  Transmission Date: 20120403
  Serious: Yes (Death, Hospitalization)
  Sender: FDA-Public Use
  Company Number: HU-GLAXOSMITHKLINE-B0767773A

PATIENT
  Sex: Female

DRUGS (9)
  1. CLOPIDOGREL [Suspect]
     Indication: PRODUCT USED FOR UNKNOWN INDICATION
     Route: 065
  2. METHOTREXATE [Suspect]
     Indication: PRODUCT USED FOR UNKNOWN INDICATION
     Route: 065
     Dates: start: 20110101
  3. CLINDAMYCIN [Suspect]
     Indication: PRODUCT USED FOR UNKNOWN INDICATION
     Route: 065
  4. CORTICOSTEROID [Concomitant]
     Route: 055
  5. METHYLPREDNISOLONE [Suspect]
     Route: 065
  6. CYCLOPHOSPHAMIDE [Suspect]
     Indication: PRODUCT USED FOR UNKNOWN INDICATION
     Route: 065
  7. HEPARIN [Concomitant]
  8. AZATHIOPRINE [Suspect]
     Indication: PRODUCT USED FOR UNKNOWN INDICATION
     Route: 065
     Dates: start: 20101001
  9. B2-AGONISTS [Concomitant]

REACTIONS (16)
  - WOUND SECRETION [None]
  - OXYGEN SATURATION DECREASED [None]
  - BLOOD LACTATE DEHYDROGENASE INCREASED [None]
  - CARDIOVASCULAR DISORDER [None]
  - PNEUMOCYSTIS JIROVECI INFECTION [None]
  - ANAEMIA [None]
  - WOUND [None]
  - HAEMATOMA [None]
  - FIBRIN D DIMER INCREASED [None]
  - PANCREATITIS [None]
  - FALL [None]
  - PYREXIA [None]
  - STREPTOCOCCAL INFECTION [None]
  - BACTERIAL TEST POSITIVE [None]
  - CYANOSIS [None]
  - PNEUMONIA [None]
